FAERS Safety Report 5328757-6 (Version None)
Quarter: 2007Q2

REPORT INFORMATION
  Report Type: 
  Country: None (occurrence: None)
  Receive Date: 20070518
  Receipt Date: 20070517
  Transmission Date: 20071010
  Serious: Yes (Hospitalization)
  Sender: FDA-Public Use
  Company Number: A0651794A

PATIENT
  Age: 47 Year
  Sex: Male

DRUGS (4)
  1. NICODERM [Suspect]
     Indication: SMOKING CESSATION THERAPY
     Dosage: 1PAT PER DAY
     Route: 062
     Dates: start: 20070321, end: 20070401
  2. COUMADIN [Concomitant]
     Indication: ANTICOAGULANT THERAPY
  3. IRON [Concomitant]
  4. CHILDREN'S BAYER CHEWABLE ASPIRIN [Concomitant]

REACTIONS (1)
  - ADVERSE EVENT [None]
